FAERS Safety Report 11258383 (Version 1)
Quarter: 2015Q3

REPORT INFORMATION
  Report Type: Spontaneous
  Country: CA (occurrence: None)
  Receive Date: 20150708
  Receipt Date: 20150708
  Transmission Date: 20151125
  Serious: Yes (Life-Threatening)
  Sender: FDA-Public Use
  Company Number: DEP_03137_2015

PATIENT
  Age: 49 Year
  Sex: Male
  Weight: 81.7 kg

DRUGS (1)
  1. NUCYNTA [Suspect]
     Active Substance: TAPENTADOL HYDROCHLORIDE
     Indication: NEURALGIA
     Dosage: (75 MG BID ORAL)
     Route: 048

REACTIONS (10)
  - Vision blurred [None]
  - Vomiting [None]
  - Decreased appetite [None]
  - Myocardial infarction [None]
  - Dizziness [None]
  - Nausea [None]
  - Balance disorder [None]
  - Disturbance in attention [None]
  - Dry mouth [None]
  - Headache [None]
